FAERS Safety Report 8339023-9 (Version None)
Quarter: 2012Q2

REPORT INFORMATION
  Report Type: 
  Country: None (occurrence: None)
  Receive Date: 20120507
  Receipt Date: 20120427
  Transmission Date: 20120825
  Serious: Yes (Death, Life-Threatening, Hospitalization, Other)
  Sender: FDA-Public Use
  Company Number: JP-BRISTOL-MYERS SQUIBB COMPANY-16465023

PATIENT
  Age: 87 Year
  Sex: Male

DRUGS (10)
  1. RABEPRAZOLE SODIUM [Concomitant]
     Route: 048
     Dates: start: 20110105, end: 20120214
  2. METFORMIN HCL [Suspect]
     Indication: TYPE 2 DIABETES MELLITUS
     Dosage: 31JAN11-14FEB12.16FEB11-22FEB11.23-24MAY11.25-09AUG11.10AUG11-UNK ALSO 500MG
     Route: 048
  3. ZETIA [Concomitant]
     Indication: CEREBRAL ARTERIOSCLEROSIS
     Route: 048
     Dates: start: 20071018, end: 20120214
  4. JANUVIA [Concomitant]
     Indication: DIABETES MELLITUS
     Route: 048
     Dates: start: 20110131, end: 20120214
  5. EPADEL [Concomitant]
     Indication: CEREBRAL ARTERIOSCLEROSIS
     Route: 048
     Dates: start: 20070110, end: 20120214
  6. DUTASTERIDE [Concomitant]
     Indication: BENIGN PROSTATIC HYPERPLASIA
     Route: 048
     Dates: start: 20101007, end: 20120214
  7. TAMSULOSIN HCL [Concomitant]
     Indication: BENIGN PROSTATIC HYPERPLASIA
     Route: 048
     Dates: start: 20101007, end: 20120214
  8. GOKUMISIN [Concomitant]
     Indication: HEPATIC FUNCTION ABNORMAL
     Route: 048
     Dates: start: 20101120, end: 20120214
  9. BISACODYL [Suspect]
     Indication: CONSTIPATION
  10. LOSARTAN POTASSIUM [Concomitant]
     Route: 048
     Dates: start: 20101007, end: 20120214

REACTIONS (5)
  - CONSTIPATION [None]
  - MESENTERIC ARTERY THROMBOSIS [None]
  - LACTIC ACIDOSIS [None]
  - SEPTIC SHOCK [None]
  - DIARRHOEA [None]
